FAERS Safety Report 4835757-9 (Version None)
Quarter: 2005Q4

REPORT INFORMATION
  Report Type: 
  Country: None (occurrence: None)
  Receive Date: 20051123
  Receipt Date: 20040920
  Transmission Date: 20060501
  Serious: Yes (Death)
  Sender: FDA-Public Use
  Company Number: US-GLAXOSMITHKLINE-A0538285A

PATIENT
  Age: 17 Year
  Sex: Female
  Weight: 69.1 kg

DRUGS (8)
  1. ADVAIR DISKUS 100/50 [Suspect]
     Indication: ASTHMA
     Dosage: 1PUFF TWICE PER DAY
     Route: 055
     Dates: start: 20010330
  2. SEREVENT [Concomitant]
     Indication: ASTHMA
     Route: 055
     Dates: start: 19970101, end: 20010330
  3. BIRTH CONTROL PILLS [Concomitant]
     Route: 048
  4. FLOVENT [Concomitant]
     Indication: ASTHMA
     Route: 055
     Dates: start: 19970101, end: 20010330
  5. SINGULAIR [Concomitant]
     Indication: ASTHMA
     Dosage: 10MG PER DAY
     Route: 048
  6. ALLEGRA [Concomitant]
     Dosage: 120MG PER DAY
     Route: 048
  7. MAXAIR [Concomitant]
     Route: 055
  8. ALBUTEROL [Concomitant]
     Route: 055

REACTIONS (9)
  - ARRHYTHMIA [None]
  - ASTHMA [None]
  - BRONCHIAL OBSTRUCTION [None]
  - CARDIAC FAILURE [None]
  - CHEST DISCOMFORT [None]
  - DEPRESSED LEVEL OF CONSCIOUSNESS [None]
  - HYPERHIDROSIS [None]
  - LOSS OF CONSCIOUSNESS [None]
  - LUNG INFILTRATION [None]
